FAERS Safety Report 4926203-5 (Version None)
Quarter: 2006Q1

REPORT INFORMATION
  Report Type: 
  Country: None (occurrence: None)
  Receive Date: 20060224
  Receipt Date: 20060224
  Transmission Date: 20060701
  Serious: Yes (Hospitalization, Other)
  Sender: FDA-Public Use
  Company Number: None

PATIENT
  Sex: Male
  Weight: 85 kg

DRUGS (6)
  1. CISPLATIN [Suspect]
     Indication: NEOPLASM MALIGNANT
     Dosage: 200 MG
     Dates: start: 20040311, end: 20040401
  2. DURAGESIC-100 [Concomitant]
  3. PLENDIL [Concomitant]
  4. ROXICODE [Concomitant]
  5. TEQUIN [Concomitant]
  6. ZANTAC [Concomitant]

REACTIONS (7)
  - BIOPSY LARYNX ABNORMAL [None]
  - DEHYDRATION [None]
  - DIZZINESS [None]
  - LARYNGEAL ULCERATION [None]
  - MUCOSAL INFLAMMATION [None]
  - ODYNOPHAGIA [None]
  - PNEUMONIA [None]
